FAERS Safety Report 8341492-5 (Version None)
Quarter: 2012Q2

REPORT INFORMATION
  Report Type: 
  Country: None (occurrence: None)
  Receive Date: 20120507
  Receipt Date: 20120502
  Transmission Date: 20120825
  Serious: Yes (Hospitalization)
  Sender: FDA-Public Use
  Company Number: PHHY2012GB037299

PATIENT
  Age: 14 Year
  Sex: Female
  Weight: 59.05 kg

DRUGS (5)
  1. SYMBICORT [Concomitant]
     Dosage: 2 DF, BID
  2. ACETAMINOPHEN [Concomitant]
     Dosage: 500 MG, PRN
  3. PIZOTIFEN [Concomitant]
     Dosage: 1.5 MG, QD
     Dates: start: 20120101
  4. SUMATRIPTAN [Suspect]
     Indication: MIGRAINE
     Dosage: 100 MG, UNK
     Route: 048
     Dates: start: 20120420
  5. MONTELUKAST [Concomitant]
     Dosage: 5 MG, QD

REACTIONS (5)
  - NECK PAIN [None]
  - DYSPNOEA [None]
  - GAIT DISTURBANCE [None]
  - HYPOAESTHESIA [None]
  - CHEST DISCOMFORT [None]
